FAERS Safety Report 6735624-X (Version None)
Quarter: 2010Q2

REPORT INFORMATION
  Report Type: 
  Country: None (occurrence: None)
  Receive Date: 20100521
  Receipt Date: 20100514
  Transmission Date: 20101027
  Serious: Yes (Hospitalization)
  Sender: FDA-Public Use
  Company Number: GB-JNJFOC-20100506899

PATIENT
  Age: 14 Year
  Sex: Female

DRUGS (4)
  1. TOPAMAX [Suspect]
     Indication: TUBEROUS SCLEROSIS
     Route: 048
  2. TOPAMAX [Suspect]
     Indication: EPILEPSY
     Route: 048
  3. OXCARBAZEPINE [Concomitant]
     Indication: TUBEROUS SCLEROSIS
     Route: 065
  4. OXCARBAZEPINE [Concomitant]
     Indication: EPILEPSY
     Route: 065

REACTIONS (2)
  - HALLUCINATION, VISUAL [None]
  - PSYCHOTIC DISORDER [None]
